FAERS Safety Report 18503998 (Version 3)
Quarter: 2020Q4

REPORT INFORMATION
  Report Type: Report from Study
  Country: US (occurrence: US)
  Receive Date: 20201113
  Receipt Date: 20201229
  Transmission Date: 20210114
  Serious: Yes (Hospitalization, Other)
  Sender: FDA-Public Use
  Company Number: NVSC2020US300034

PATIENT
  Age: 69 Year
  Sex: Female
  Weight: 63.49 kg

DRUGS (3)
  1. MAGNESIUM [Suspect]
     Active Substance: MAGNESIUM
     Indication: PRODUCT USED FOR UNKNOWN INDICATION
     Dosage: UNK
     Route: 065
  2. TREPROSTINIL. [Suspect]
     Active Substance: TREPROSTINIL
     Indication: PULMONARY ARTERIAL HYPERTENSION
     Dosage: 11 NG/KG/MIN, CONT
     Route: 042
     Dates: start: 20201023
  3. TREPROSTINIL. [Suspect]
     Active Substance: TREPROSTINIL
     Dosage: 15 NG/KG/MIN, CONT
     Route: 042

REACTIONS (5)
  - Arthritis [Unknown]
  - Headache [Unknown]
  - Abdominal discomfort [Unknown]
  - Dyspnoea [Unknown]
  - Cardiac failure [Unknown]

NARRATIVE: CASE EVENT DATE: 20201222
